FAERS Safety Report 16850597 (Version 1)
Quarter: 2019Q3

REPORT INFORMATION
  Report Type: Spontaneous
  Country: US (occurrence: US)
  Receive Date: 20190925
  Receipt Date: 20190925
  Transmission Date: 20191005
  Serious: No
  Sender: FDA-Public Use
  Company Number: US-THERAPEUTICSMD-2019TMD02217

PATIENT
  Sex: Female
  Weight: 73.92 kg

DRUGS (5)
  1. IMVEXXY [Suspect]
     Active Substance: ESTRADIOL
     Indication: DYSPAREUNIA
     Dosage: 10 ?G, 2X/WEEK AT BEDTIME WHILE LAYING FLAT
     Route: 067
     Dates: start: 2019, end: 201906
  2. DOXYCYCLINE. [Concomitant]
     Active Substance: DOXYCYCLINE
     Dosage: 50 MG, 2X/DAY
  3. IMVEXXY [Suspect]
     Active Substance: ESTRADIOL
     Indication: VULVOVAGINAL DRYNESS
     Dosage: 10 ?G, 2X/WEEK AT BEDTIME WHILE LAYING FLAT
     Route: 067
     Dates: start: 201903, end: 201905
  4. UNSPECIFIED STATIN [Concomitant]
  5. IMVEXXY [Suspect]
     Active Substance: ESTRADIOL
     Dosage: 10 ?G, 2X/WEEK AT BEDTIME WHILE LAYING FLAT
     Route: 067
     Dates: start: 2019

REACTIONS (5)
  - Vulvovaginal pain [Not Recovered/Not Resolved]
  - Product residue present [Not Recovered/Not Resolved]
  - Vaginal discharge [Not Recovered/Not Resolved]
  - Fungal infection [Not Recovered/Not Resolved]
  - Off label use [Not Recovered/Not Resolved]

NARRATIVE: CASE EVENT DATE: 2019
